FAERS Safety Report 20737127 (Version 6)
Quarter: 2023Q1

REPORT INFORMATION
  Report Type: Spontaneous
  Country: US (occurrence: US)
  Receive Date: 20220421
  Receipt Date: 20230302
  Transmission Date: 20230418
  Serious: No
  Sender: FDA-Public Use
  Company Number: US-PFIZER INC-202200418421

PATIENT
  Age: 81 Year
  Sex: Female

DRUGS (2)
  1. IBRANCE [Suspect]
     Active Substance: PALBOCICLIB
     Indication: Breast cancer metastatic
     Dosage: 75 MG
  2. IBRANCE [Suspect]
     Active Substance: PALBOCICLIB
     Dosage: 1 TABLET DAILY. SWALLOW WHOLE. WITH OR WITHOUT FOOD ON DAYS 1-14 OF A 28 DAY CYCLE
     Route: 048

REACTIONS (3)
  - Full blood count decreased [Unknown]
  - Malaise [Unknown]
  - Off label use [Unknown]
